FAERS Safety Report 9528556 (Version 1)
Quarter: 2013Q1

REPORT INFORMATION
  Report Type: Spontaneous
  Country: US (occurrence: None)
  Receive Date: 20130320
  Receipt Date: 20130320
  Transmission Date: 20140127
  Serious: Yes (Death, Hospitalization)
  Sender: FDA-Public Use
  Company Number: 075265

PATIENT
  Age: 49 Year
  Sex: Male

DRUGS (5)
  1. ALPRAZOLAM [Suspect]
  2. METHADONE [Suspect]
  3. CLONAZEPAM [Suspect]
  4. PROMETHAZINE [Suspect]
  5. DIPHENHYDRAMINE [Suspect]

REACTIONS (2)
  - Cardio-respiratory arrest [None]
  - Toxicity to various agents [None]
